FAERS Safety Report 18312353 (Version 11)
Quarter: 2021Q1

REPORT INFORMATION
  Report Type: Spontaneous
  Country: US (occurrence: US)
  Receive Date: 20200925
  Receipt Date: 20210311
  Transmission Date: 20210419
  Serious: Yes (Hospitalization, Other)
  Sender: FDA-Public Use
  Company Number: US-GLAXOSMITHKLINE-US2020AMR187010

PATIENT
  Sex: Female

DRUGS (10)
  1. CAPECITABINE. [Suspect]
     Active Substance: CAPECITABINE
     Indication: PRODUCT USED FOR UNKNOWN INDICATION
     Dosage: 2000 MG, AM
  2. TUKYSA [Suspect]
     Active Substance: TUCATINIB
     Indication: BREAST CANCER FEMALE
     Dosage: 150 MG, BID
  3. TUKYSA [Suspect]
     Active Substance: TUCATINIB
     Dosage: UNK
  4. HERCEPTIN [Suspect]
     Active Substance: TRASTUZUMAB
     Indication: PRODUCT USED FOR UNKNOWN INDICATION
     Dosage: UNK
  5. TUKYSA [Suspect]
     Active Substance: TUCATINIB
     Dosage: UNK
  6. TUKYSA [Suspect]
     Active Substance: TUCATINIB
     Dosage: UNK
  7. CAPECITABINE. [Suspect]
     Active Substance: CAPECITABINE
     Dosage: 1500 MG
  8. LAMISIL [Suspect]
     Active Substance: TERBINAFINE HYDROCHLORIDE
     Indication: PRODUCT USED FOR UNKNOWN INDICATION
     Dosage: UNK
  9. FLUTICASONE. [Interacting]
     Active Substance: FLUTICASONE
     Indication: HYPERSENSITIVITY
     Dosage: UNK
  10. TUKYSA [Suspect]
     Active Substance: TUCATINIB
     Dosage: UNK

REACTIONS (31)
  - Clostridium difficile infection [Unknown]
  - Nightmare [Unknown]
  - Unevaluable event [Unknown]
  - Drug interaction [Unknown]
  - Condition aggravated [Unknown]
  - Product dose omission issue [Unknown]
  - Pain [Unknown]
  - Atrial fibrillation [Unknown]
  - Ill-defined disorder [Unknown]
  - Sneezing [Unknown]
  - Arthritis [Unknown]
  - Diarrhoea [Unknown]
  - Dry skin [Unknown]
  - Chest discomfort [Unknown]
  - Gastrooesophageal reflux disease [Unknown]
  - Thirst [Unknown]
  - Dry mouth [Unknown]
  - Memory impairment [Unknown]
  - Movement disorder [Unknown]
  - Muscle spasms [Recovering/Resolving]
  - Gastrointestinal infection [Unknown]
  - Ocular discomfort [Unknown]
  - Pruritus [Unknown]
  - Back pain [Unknown]
  - Blood pressure abnormal [Unknown]
  - Onychomycosis [Unknown]
  - Diverticulitis [Unknown]
  - Muscle strain [Unknown]
  - Headache [Unknown]
  - Rhinorrhoea [Unknown]
  - Hypersensitivity [Unknown]

NARRATIVE: CASE EVENT DATE: 20200908
